FAERS Safety Report 5793263-1 (Version None)
Quarter: 2008Q2

REPORT INFORMATION
  Report Type: 
  Country: None (occurrence: None)
  Receive Date: 20080626
  Receipt Date: 20080626
  Transmission Date: 20081010
  Serious: No
  Sender: FDA-Public Use
  Company Number: None

PATIENT
  Age: 33 Year
  Sex: Male
  Weight: 70.3075 kg

DRUGS (1)
  1. LEVAQUIN [Suspect]
     Indication: UPPER RESPIRATORY TRACT INFECTION
     Dosage: 500 MG 1 DAY PO
     Route: 048
     Dates: start: 20050801, end: 20050806

REACTIONS (4)
  - MUSCULAR WEAKNESS [None]
  - MYALGIA [None]
  - PAIN [None]
  - PARAESTHESIA [None]
